FAERS Safety Report 9632435 (Version 2)
Quarter: 2013Q4

REPORT INFORMATION
  Report Type: Spontaneous
  Country: US (occurrence: US)
  Receive Date: 20131018
  Receipt Date: 20131030
  Transmission Date: 20140711
  Serious: No
  Sender: FDA-Public Use
  Company Number: US-PFIZER INC-2013297174

PATIENT
  Age: 77 Year
  Sex: Male
  Weight: 112 kg

DRUGS (2)
  1. LYRICA [Suspect]
     Indication: FIBROMYALGIA
     Dosage: 150 MG, 3X/DAY
  2. LYRICA [Suspect]
     Indication: NEUROPATHY PERIPHERAL

REACTIONS (5)
  - Drug ineffective [Unknown]
  - Hypoaesthesia [Unknown]
  - Gait disturbance [Unknown]
  - Pain [Unknown]
  - Drug dispensing error [Unknown]
